FAERS Safety Report 10793045 (Version 4)
Quarter: 2015Q2

REPORT INFORMATION
  Report Type: Spontaneous
  Country: DK (occurrence: IT)
  Receive Date: 20150213
  Receipt Date: 20150428
  Transmission Date: 20150821
  Serious: Yes (Hospitalization, Other)
  Sender: FDA-Public Use
  Company Number: IT-FRI-1000074396

PATIENT
  Age: 74 Year
  Sex: Female

DRUGS (17)
  1. NOOTROPIL [Concomitant]
     Active Substance: PIRACETAM
     Indication: MYOCLONUS
     Dosage: 3000 MG
     Route: 048
  2. SERENASE [Suspect]
     Active Substance: HALOPERIDOL
     Indication: PERSONALITY DISORDER
     Route: 048
     Dates: end: 20150109
  3. TAVOR [Suspect]
     Active Substance: LORAZEPAM
     Indication: DEPRESSION
     Route: 048
  4. ESCITALOPRAM [Suspect]
     Active Substance: ESCITALOPRAM OXALATE
     Indication: DEPRESSION
     Dosage: 20 DROPS
     Route: 048
  5. ESCITALOPRAM [Suspect]
     Active Substance: ESCITALOPRAM OXALATE
  6. TRIATEC [Concomitant]
     Active Substance: RAMIPRIL
     Indication: HYPERTENSION
     Dosage: 10 MG
     Route: 048
  7. CITICOLIN [Concomitant]
     Indication: TREMOR
     Dosage: 4000 MG
     Route: 048
  8. PSYCOTON [Concomitant]
     Indication: VASCULAR COGNITIVE IMPAIRMENT
     Dosage: 3 G
     Route: 048
  9. SEQUACOR [Concomitant]
     Active Substance: BISOPROLOL
     Indication: HYPERTENSION
     Dosage: 5 MG
     Route: 048
  10. CARDIOASPIRIN [Concomitant]
     Active Substance: ASPIRIN
     Indication: THROMBOSIS PROPHYLAXIS
     Dosage: 100 MG
     Route: 048
  11. PANTOPAN [Concomitant]
     Active Substance: PANTOPRAZOLE SODIUM
     Indication: GASTRIC MUCOSAL LESION
     Dosage: 20 MG
     Route: 048
  12. HIBISCUS SABDARIFFA [Concomitant]
     Indication: CYSTITIS
  13. SERENASE [Suspect]
     Active Substance: HALOPERIDOL
     Route: 048
     Dates: start: 20150109, end: 20150112
  14. SERENASE [Suspect]
     Active Substance: HALOPERIDOL
     Dosage: 25 DROPS IN THE EVENING
     Route: 048
     Dates: start: 20150119
  15. TAVOR [Suspect]
     Active Substance: LORAZEPAM
     Dosage: 2 MG
     Route: 048
  16. TAVOR [Suspect]
     Active Substance: LORAZEPAM
     Dosage: OVERDOSE: 4 MG
     Route: 048
  17. ATORVASTATINA [Concomitant]
     Active Substance: ATORVASTATIN
     Indication: HYPERCHOLESTEROLAEMIA
     Dosage: 20 MG
     Route: 048

REACTIONS (5)
  - Cerebrovascular disorder [Unknown]
  - Overdose [Unknown]
  - Speech disorder [Unknown]
  - Muscle rigidity [Unknown]
  - Sopor [Unknown]

NARRATIVE: CASE EVENT DATE: 20150111
